FAERS Safety Report 6758133-0 (Version None)
Quarter: 2010Q2

REPORT INFORMATION
  Report Type: 
  Country: None (occurrence: None)
  Receive Date: 20100603
  Receipt Date: 20100524
  Transmission Date: 20101027
  Serious: Yes (Other)
  Sender: FDA-Public Use
  Company Number: IDA-00369

PATIENT
  Sex: Female

DRUGS (6)
  1. INDERAL [Suspect]
     Indication: PALPITATIONS
     Dosage: 60 MG DAILY, ORAL
     Route: 048
     Dates: start: 20100201
  2. XALATAN [Suspect]
     Indication: CATARACT
     Dosage: 1 DROP (1.5 UG) IN EACH EYE; OPHTHALMIC
     Route: 047
     Dates: start: 20091001
  3. XALATAN [Suspect]
     Indication: OCULAR HYPERTENSION
     Dosage: 1 DROP (1.5 UG) IN EACH EYE; OPHTHALMIC
     Route: 047
     Dates: start: 20091001
  4. BETASERC (BETAHISTINE HYDROCHLORIDE) [Concomitant]
  5. VASTAREL (TRIMETAZIDINE HYDROCHLORIDE) [Concomitant]
  6. XANAX [Concomitant]

REACTIONS (8)
  - CONDITION AGGRAVATED [None]
  - DIZZINESS [None]
  - FALL [None]
  - HYPERTENSION [None]
  - LOSS OF CONSCIOUSNESS [None]
  - NERVOUSNESS [None]
  - OEDEMA PERIPHERAL [None]
  - PALPITATIONS [None]
